FAERS Safety Report 4966537-1 (Version None)
Quarter: 2006Q1

REPORT INFORMATION
  Report Type: 
  Country: None (occurrence: None)
  Receive Date: 20060201
  Receipt Date: 20051004
  Transmission Date: 20060701
  Serious: No
  Sender: FDA-Public Use
  Company Number: 2005PV002820

PATIENT
  Age: 70 Year
  Sex: Female
  Weight: 95.2554 kg

DRUGS (17)
  1. BYETTA [Suspect]
     Indication: DIABETES MELLITUS NON-INSULIN-DEPENDENT
     Dosage: SEE IMAGE
     Route: 058
     Dates: start: 20050601, end: 20050915
  2. BYETTA [Suspect]
     Indication: DIABETES MELLITUS NON-INSULIN-DEPENDENT
     Dosage: SEE IMAGE
     Route: 058
     Dates: start: 20050916
  3. ACTOS [Concomitant]
  4. GLUCOSAMINE / CHONDROITIN [Concomitant]
  5. CALCIUM CALTRATE +D [Concomitant]
  6. POLY IRON [Concomitant]
  7. MULTIVITAMIN [Concomitant]
  8. TRAMADOL HCL [Concomitant]
  9. CELEBREX [Concomitant]
  10. ASPIRIN [Concomitant]
  11. EMBLEX [Concomitant]
  12. LISINOPRIL AND HYDROCHLOROTHIAZIDE [Concomitant]
  13. NASONEX [Concomitant]
  14. DITROPAN XL [Concomitant]
  15. CRESTOR [Concomitant]
  16. BENEFIBER [Concomitant]
  17. COLACE [Concomitant]

REACTIONS (5)
  - CONSTIPATION [None]
  - INJECTION SITE HAEMORRHAGE [None]
  - NAUSEA [None]
  - PERIPHERAL COLDNESS [None]
  - TREMOR [None]
